FAERS Safety Report 8530435-7 (Version None)
Quarter: 2012Q3

REPORT INFORMATION
  Report Type: 
  Country: None (occurrence: None)
  Receive Date: 20120723
  Receipt Date: 20120629
  Transmission Date: 20120928
  Serious: Yes (Death, Life-Threatening, Hospitalization, Disabling)
  Sender: FDA-Public Use
  Company Number: HR-SANOFI-AVENTIS-200814766GDDC

PATIENT
  Age: 71 Year
  Sex: Male

DRUGS (9)
  1. RAMIPRIL + HYDROCHLOROTHIAZIDE [Concomitant]
     Dosage: DOSE AS USED: 2.5 + 12.5 MG
     Dates: start: 20070201, end: 20080201
  2. LANTUS [Suspect]
     Indication: DIABETES MELLITUS
     Dosage: DOSE:45 UNIT(S)
     Route: 058
     Dates: start: 20031202
  3. PANTOPRAZOLE [Concomitant]
     Dates: start: 20070801
  4. ACETYLSALICYLIC ACID SRT [Concomitant]
     Indication: ACUTE MYOCARDIAL INFARCTION
     Dates: start: 19950801, end: 20080201
  5. ISOSORBIDE DINITRATE [Concomitant]
     Dates: start: 19951201, end: 20080201
  6. GLYBURIDE [Concomitant]
     Dates: start: 20010801, end: 20080201
  7. ATORVASTATIN [Concomitant]
     Dates: start: 20061201, end: 20080201
  8. OPTIPEN [Suspect]
     Indication: DIABETES MELLITUS
  9. PLACEBO [Suspect]
     Route: 048
     Dates: start: 20040126

REACTIONS (3)
  - RENAL FAILURE ACUTE [None]
  - MULTIPLE MYELOMA [None]
  - PLASMACYTOMA [None]
